FAERS Safety Report 8091308-X (Version None)
Quarter: 2012Q1

REPORT INFORMATION
  Report Type: 
  Country: None (occurrence: None)
  Receive Date: 20120129
  Receipt Date: 20111017
  Transmission Date: 20120608
  Serious: No
  Sender: FDA-Public Use
  Company Number: US-ABBOTT-11P-163-0865439-00

PATIENT
  Sex: Female
  Weight: 106.69 kg

DRUGS (14)
  1. ADVAIR DISKUS 100/50 [Concomitant]
     Indication: ASTHMA
     Dosage: DISKUS
  2. METOPROLOL TARTRATE [Concomitant]
     Indication: HYPERTENSION
  3. HUMULIN R [Concomitant]
     Indication: DIABETES MELLITUS
     Dosage: INSULIN
  4. THEOPHYLLINE [Concomitant]
     Indication: RESPIRATION ABNORMAL
  5. ASPIRIN [Concomitant]
     Indication: CARDIAC DISORDER
  6. CLONIDINE [Concomitant]
     Indication: HYPERTENSION
  7. LORAZEPAM [Concomitant]
     Indication: INSOMNIA
     Dosage: AT BEDTIME
  8. OMEPRAZOLE [Concomitant]
     Indication: GASTROOESOPHAGEAL REFLUX DISEASE
  9. LISINOPRIL [Concomitant]
     Indication: HYPERTENSION
  10. SEROQUEL [Concomitant]
     Indication: INSOMNIA
     Dosage: AT BEDTIME
  11. FLUTICASONE PROPIONATE [Concomitant]
     Indication: RHINITIS
     Route: 045
  12. AMLODIPINIE [Concomitant]
     Indication: HYPERTENSION
  13. HUMIRA [Suspect]
     Indication: RHEUMATOID ARTHRITIS
     Dates: end: 20110601
  14. LASIX [Concomitant]
     Indication: HYPERTENSION

REACTIONS (3)
  - PAIN [None]
  - OEDEMA PERIPHERAL [None]
  - ARTHRALGIA [None]
